FAERS Safety Report 13847102 (Version 2)
Quarter: 2017Q4

REPORT INFORMATION
  Report Type: Spontaneous
  Country: US (occurrence: US)
  Receive Date: 20170808
  Receipt Date: 20171205
  Transmission Date: 20180320
  Serious: Yes (Other)
  Sender: FDA-Public Use
  Company Number: US-PFIZER INC-2017337664

PATIENT
  Age: 63 Year
  Sex: Male
  Weight: 84 kg

DRUGS (4)
  1. VIAGRA [Suspect]
     Active Substance: SILDENAFIL CITRATE
     Indication: BASEDOW^S DISEASE
  2. VIAGRA [Suspect]
     Active Substance: SILDENAFIL CITRATE
     Indication: EMPHYSEMA
     Dosage: 100 MG, AS NEEDED
     Route: 048
  3. AMLODIPINE [Concomitant]
     Active Substance: AMLODIPINE BESYLATE
     Indication: BLOOD PRESSURE ABNORMAL
     Dosage: 10.5 MG, 1X/DAY, ^JUST ONCE^
  4. VALSARTAN. [Concomitant]
     Active Substance: VALSARTAN
     Indication: BLOOD PRESSURE ABNORMAL
     Dosage: 160 MG, 1X/DAY, ^JUST ONCE^
     Route: 048

REACTIONS (5)
  - Gait disturbance [Recovering/Resolving]
  - Product use in unapproved indication [Unknown]
  - Rib fracture [Recovering/Resolving]
  - Road traffic accident [Recovering/Resolving]
  - Joint range of motion decreased [Recovering/Resolving]

NARRATIVE: CASE EVENT DATE: 20170417
